FAERS Safety Report 20908942 (Version 2)
Quarter: 2022Q2

REPORT INFORMATION
  Report Type: Spontaneous
  Country: IT (occurrence: IT)
  Receive Date: 20220603
  Receipt Date: 20220622
  Transmission Date: 20220721
  Serious: Yes (Other)
  Sender: FDA-Public Use
  Company Number: None

PATIENT
  Age: 69 Year
  Sex: Female
  Weight: 74 kg

DRUGS (1)
  1. KEVZARA [Suspect]
     Active Substance: SARILUMAB
     Indication: Rheumatoid arthritis
     Dosage: 200 MG, DRUG_INTERVAL_DOSAGE_UNIT_NUMBER : 1 DRUG_INTERVAL_DOSAGE_DEFINITION : {CYCLICAL}
     Route: 058
     Dates: start: 20220329, end: 20220419

REACTIONS (1)
  - Injection site urticaria [Recovering/Resolving]

NARRATIVE: CASE EVENT DATE: 20220515
